FAERS Safety Report 9717102 (Version 2)
Quarter: 2013Q4

REPORT INFORMATION
  Report Type: Spontaneous
  Country: US (occurrence: US)
  Receive Date: 20131127
  Receipt Date: 20131127
  Transmission Date: 20140711
  Serious: No
  Sender: FDA-Public Use
  Company Number: US-GILEAD-2009-0020739

PATIENT
  Age: 74 Year
  Sex: Female
  Weight: 92.53 kg

DRUGS (13)
  1. LETAIRIS [Suspect]
     Indication: PULMONARY HYPERTENSION
     Route: 048
     Dates: start: 20080710
  2. HUMALOG [Concomitant]
     Indication: DIABETES MELLITUS
  3. BROVANA [Concomitant]
  4. TAMOXIFEN [Concomitant]
     Indication: BREAST CANCER
  5. LYRICA [Concomitant]
  6. PLAVIX [Concomitant]
  7. PREDNISONE [Concomitant]
  8. SERTALINE [Concomitant]
  9. LIPITOR [Concomitant]
  10. LOVAZA [Concomitant]
  11. ASPIRIN [Concomitant]
  12. PROTONIX LIQUID [Concomitant]
  13. CITRACAL PLUS D [Concomitant]

REACTIONS (1)
  - Fatigue [Recovering/Resolving]
